FAERS Safety Report 8519269-7 (Version None)
Quarter: 2012Q3

REPORT INFORMATION
  Report Type: 
  Country: None (occurrence: None)
  Receive Date: 20120718
  Receipt Date: 20120712
  Transmission Date: 20120928
  Serious: Yes (Other)
  Sender: FDA-Public Use
  Company Number: IT-ABBOTT-12P-083-0955497-00

PATIENT
  Sex: Female

DRUGS (2)
  1. ALL OTHER THERAPEUTIC PRODUCTS [Suspect]
     Indication: HYPOGAMMAGLOBULINAEMIA
     Route: 042
     Dates: start: 20110901, end: 20120510
  2. HUMIRA [Suspect]
     Indication: CROHN'S DISEASE
     Dosage: CYCLIC
     Route: 058
     Dates: start: 20110901, end: 20120522

REACTIONS (5)
  - PHARYNGITIS [None]
  - ERYTHEMA [None]
  - LYMPHADENOPATHY [None]
  - PAPULE [None]
  - PRURITUS [None]
